FAERS Safety Report 9453581 (Version 1)
Quarter: 2013Q3

REPORT INFORMATION
  Report Type: Spontaneous
  Country: US (occurrence: None)
  Receive Date: 20130809
  Receipt Date: 20130809
  Transmission Date: 20140515
  Serious: Yes (Life-Threatening)
  Sender: FDA-Public Use
  Company Number: None

PATIENT
  Age: 38 Year
  Sex: Male

DRUGS (1)
  1. PREGABALIN [Suspect]
     Indication: PAIN
     Dosage: 150 MG BID PO?~07/02/2013 THRU ~07/23/2013
     Route: 048
     Dates: start: 20130702, end: 20130723

REACTIONS (7)
  - Hypersomnia [None]
  - Suicidal ideation [None]
  - Depression [None]
  - Sedation [None]
  - Asthenia [None]
  - Loss of employment [None]
  - Marital problem [None]
